FAERS Safety Report 23938595 (Version 1)
Quarter: 2024Q2

REPORT INFORMATION
  Report Type: Spontaneous
  Country: US (occurrence: US)
  Receive Date: 20240604
  Receipt Date: 20240604
  Transmission Date: 20240715
  Serious: No
  Sender: FDA-Public Use
  Company Number: US-PFIZER INC-202400184973

PATIENT
  Age: 65 Year
  Sex: Female

DRUGS (2)
  1. XELJANZ XR [Suspect]
     Active Substance: TOFACITINIB CITRATE
     Indication: Rheumatoid arthritis
     Dosage: 11 MG, 1X/DAY (BEFORE A MEAL) FOR 90 DAYS
     Dates: end: 202312
  2. XELJANZ XR [Suspect]
     Active Substance: TOFACITINIB CITRATE
     Indication: Polyarthritis
     Dosage: 11 MG, 1X/DAY (BEFORE A MEAL) FOR 90 DAYS
     Dates: start: 202401

REACTIONS (3)
  - Infection [Unknown]
  - Paraesthesia [Recovered/Resolved]
  - Breast pain [Recovering/Resolving]

NARRATIVE: CASE EVENT DATE: 20231201
